FAERS Safety Report 6160106-6 (Version None)
Quarter: 2009Q2

REPORT INFORMATION
  Report Type: 
  Country: None (occurrence: None)
  Receive Date: 20090415
  Receipt Date: 20090330
  Transmission Date: 20091009
  Serious: Yes (Other)
  Sender: FDA-Public Use
  Company Number: 8044722

PATIENT
  Age: 67 Year
  Sex: Male

DRUGS (15)
  1. PREDNISOLONE [Suspect]
     Indication: ASTHMA
  2. PROPOFOL [Suspect]
     Indication: GENERAL ANAESTHESIA
  3. PROPOFOL [Suspect]
     Indication: GENERAL ANAESTHESIA
  4. PROPOFOL [Suspect]
     Indication: GENERAL ANAESTHESIA
  5. DIGOXIN [Concomitant]
  6. VERAPAMIL [Concomitant]
  7. BISOPROLOL FUMARATE [Concomitant]
  8. RAMIPRIL [Concomitant]
  9. NITRATES [Concomitant]
  10. ANTIPLATELETS [Concomitant]
  11. NIDAZOLAM [Concomitant]
  12. THIOPENTAL SODIUM [Concomitant]
  13. FENTANYL [Concomitant]
  14. VECURONIUM BROMIDE [Concomitant]
  15. ISOFLURANE [Concomitant]

REACTIONS (5)
  - BLOOD CREATINE PHOSPHOKINASE INCREASED [None]
  - HAEMOGLOBIN URINE PRESENT [None]
  - METABOLIC ACIDOSIS [None]
  - MYOGLOBIN URINE PRESENT [None]
  - PROPOFOL INFUSION SYNDROME [None]
